FAERS Safety Report 21070421 (Version 1)
Quarter: 2022Q3

REPORT INFORMATION
  Report Type: Spontaneous
  Country: US (occurrence: US)
  Receive Date: 20220712
  Receipt Date: 20220712
  Transmission Date: 20221027
  Serious: Yes (Other)
  Sender: FDA-Public Use
  Company Number: US-AMERICAN REGENT INC-2022001844

PATIENT
  Age: 39 Year
  Sex: Female
  Weight: 42.63 kg

DRUGS (22)
  1. VENOFER [Suspect]
     Active Substance: IRON SUCROSE
     Indication: Iron deficiency anaemia
     Dosage: 300 MILLIGRAM IN 250 ML SODIUM CHLORIDE (NS) 0.9 %, SINGLE
     Route: 042
     Dates: start: 20190710, end: 20190710
  2. VENOFER [Suspect]
     Active Substance: IRON SUCROSE
     Dosage: 300 MILLIGRAM IN 250 ML SODIUM CHLORIDE (NS) 0.9 %, SINGLE
     Route: 042
     Dates: start: 20190725, end: 20190725
  3. VENOFER [Suspect]
     Active Substance: IRON SUCROSE
     Dosage: 300 MILLIGRAM IN 250 ML SODIUM CHLORIDE (NS) 0.9 %, SINGLE
     Route: 042
     Dates: start: 20190816, end: 20190816
  4. VENOFER [Suspect]
     Active Substance: IRON SUCROSE
     Dosage: 300 MILLIGRAM IN 250 ML SODIUM CHLORIDE (NS) 0.9 %, SINGLE
     Route: 042
     Dates: start: 20200710, end: 20200710
  5. VENOFER [Suspect]
     Active Substance: IRON SUCROSE
     Dosage: 300 MILLIGRAM IN 250 ML SODIUM CHLORIDE (NS) 0.9 %, SINGLE
     Route: 042
     Dates: start: 20200723, end: 20200723
  6. VENOFER [Suspect]
     Active Substance: IRON SUCROSE
     Dosage: 300 MILLIGRAM IN 250 ML SODIUM CHLORIDE (NS) 0.9 %, SINGLE
     Route: 042
     Dates: start: 20200727, end: 20200727
  7. VENOFER [Suspect]
     Active Substance: IRON SUCROSE
     Dosage: 300 MILLIGRAM IN 250 ML SODIUM CHLORIDE (NS) 0.9 %, SINGLE
     Route: 042
     Dates: start: 20200803, end: 20200803
  8. VENOFER [Suspect]
     Active Substance: IRON SUCROSE
     Dosage: 300 MILLIGRAM IN 250 ML SODIUM CHLORIDE (NS) 0.9 %, SINGLE
     Route: 042
     Dates: start: 20200810, end: 20200810
  9. VENOFER [Suspect]
     Active Substance: IRON SUCROSE
     Dosage: 300 MILLIGRAM IN 250 ML SODIUM CHLORIDE (NS) 0.9 %, SINGLE
     Route: 042
     Dates: start: 20200817, end: 20200817
  10. FLONASE [Concomitant]
     Active Substance: FLUTICASONE PROPIONATE
     Indication: Rhinitis
     Dosage: 50 MICROGRAM SPRAY INTO EACH NOSTRIL AS NEEDED
     Route: 045
  11. ATARAX [Concomitant]
     Active Substance: HYDROXYZINE HYDROCHLORIDE
     Indication: Anxiety
     Dosage: 10 MILLIGRAM EVERY 8 HOURS AS NEEDED
     Route: 048
  12. ANTIVERT [Concomitant]
     Active Substance: MECLIZINE HYDROCHLORIDE
     Indication: Dizziness
     Dosage: 12.5 MILLIGRAM, TID AS NEEDED
     Route: 048
  13. PRILOSEC [Concomitant]
     Active Substance: OMEPRAZOLE MAGNESIUM
     Indication: Gastrooesophageal reflux disease
     Dosage: 40 MILLIGRAM, QD
     Route: 048
  14. PRILOSEC [Concomitant]
     Active Substance: OMEPRAZOLE MAGNESIUM
     Dosage: 20 MILLIGRAM, BID
     Route: 048
  15. CELEBREX [Concomitant]
     Active Substance: CELECOXIB
     Indication: Product used for unknown indication
     Dosage: 100 MILLIGRAM EVERY 12 HOURS FOR SEVEN DAYS BUT NOT TOT EXCEED 12 HOURS
     Route: 048
  16. MOTRIN [Concomitant]
     Active Substance: IBUPROFEN
     Indication: Pain
     Dosage: 200 MILLIGRAM, PRN
     Route: 048
  17. MOTRIN [Concomitant]
     Active Substance: IBUPROFEN
     Dosage: 400 MILLIGRAM, EVERY 6 HRS PRN
     Route: 048
  18. VITAMIN B12 [Concomitant]
     Active Substance: CYANOCOBALAMIN
     Indication: Product used for unknown indication
     Dosage: 1000-400 MCG
     Route: 060
  19. VITAMIN D3 [Concomitant]
     Active Substance: CHOLECALCIFEROL
     Indication: Product used for unknown indication
     Dosage: 50 MICROGRAM (2000 UNIT)
     Route: 065
  20. PYRIDIUM [Concomitant]
     Active Substance: PHENAZOPYRIDINE
     Indication: Bladder spasm
     Dosage: 100 MILLIGRAM, TID AS NEEDED
     Route: 048
  21. KEFLEX [Concomitant]
     Active Substance: CEPHALEXIN
     Indication: Product used for unknown indication
     Dosage: 500 MILLIGRAM, BID
     Route: 048
  22. VITAMIN D2 [Concomitant]
     Active Substance: ERGOCALCIFEROL
     Indication: Product used for unknown indication
     Dosage: 1,250 MCG (50000 UNIT) ONCE A WEEK
     Route: 048

REACTIONS (10)
  - Joint swelling [Unknown]
  - Generalised oedema [Unknown]
  - Nervousness [Unknown]
  - Restlessness [Unknown]
  - Muscle spasms [Unknown]
  - Arthralgia [Unknown]
  - Peripheral swelling [Unknown]
  - Incorrect product administration duration [Unknown]
  - Product use in unapproved indication [Unknown]
  - Inappropriate schedule of product administration [Unknown]

NARRATIVE: CASE EVENT DATE: 20190710
